FAERS Safety Report 6231450-9 (Version None)
Quarter: 2009Q2

REPORT INFORMATION
  Report Type: 
  Country: None (occurrence: None)
  Receive Date: 20090611
  Receipt Date: 20090528
  Transmission Date: 20091009
  Serious: Yes (Other)
  Sender: FDA-Public Use
  Company Number: 1000006656

PATIENT
  Age: 35 Year
  Sex: Female

DRUGS (4)
  1. ESCITALOPRAM [Suspect]
     Dosage: 10 MG (10 MG, 1 IN 1 D), ORAL
     Route: 048
     Dates: start: 20090211
  2. ZELDOX (TABLETS) [Suspect]
     Dosage: 120 MG (60 MG, 2 IN 1 D), ORAL
     Route: 048
     Dates: start: 20090126, end: 20090224
  3. ZELDOX (TABLETS) [Suspect]
     Dosage: 80 MG (40 MG, 2 IN 1 D), ORAL
     Route: 048
     Dates: start: 20090225
  4. TEMESTA [Concomitant]

REACTIONS (5)
  - AKATHISIA [None]
  - CHILLS [None]
  - DRUG INTERACTION [None]
  - GAIT DISTURBANCE [None]
  - POSTURE ABNORMAL [None]
